FAERS Safety Report 5586873-8 (Version None)
Quarter: 2008Q1

REPORT INFORMATION
  Report Type: 
  Country: None (occurrence: None)
  Receive Date: 20080110
  Receipt Date: 20071225
  Transmission Date: 20080703
  Serious: Yes (Other)
  Sender: FDA-Public Use
  Company Number: JP-JNJFOC-20080102014

PATIENT
  Sex: Male
  Weight: 61 kg

DRUGS (11)
  1. REMICADE [Suspect]
     Route: 042
  2. REMICADE [Suspect]
     Indication: CROHN'S DISEASE
     Route: 042
  3. PENTASA [Concomitant]
     Indication: CROHN'S DISEASE
     Route: 048
  4. BIOFERMIN [Concomitant]
     Indication: CROHN'S DISEASE
     Route: 048
  5. SELBEX [Concomitant]
     Indication: CROHN'S DISEASE
     Route: 048
  6. GASTER D [Concomitant]
     Indication: CROHN'S DISEASE
     Route: 048
  7. ELENTAL [Concomitant]
     Indication: CROHN'S DISEASE
     Route: 048
  8. FLAGYL [Concomitant]
     Indication: CROHN'S DISEASE
     Route: 048
  9. ALLEGRA [Concomitant]
     Route: 048
  10. SOLU-MEDROL [Concomitant]
     Route: 042
  11. ISOTONIC SODIUM CHLORIDE [Concomitant]
     Route: 042

REACTIONS (4)
  - DYSPNOEA [None]
  - HYPOXIA [None]
  - INFUSION RELATED REACTION [None]
  - RASH [None]
